FAERS Safety Report 4736702-7 (Version None)
Quarter: 2005Q3

REPORT INFORMATION
  Report Type: 
  Country: None (occurrence: None)
  Receive Date: 20050802
  Receipt Date: 20050720
  Transmission Date: 20060218
  Serious: Yes (Other)
  Sender: FDA-Public Use
  Company Number: 2005096463

PATIENT
  Age: 55 Year
  Sex: Male
  Weight: 80 kg

DRUGS (13)
  1. SOLU-MEDROL [Suspect]
     Indication: GLOMERULONEPHRITIS MEMBRANOPROLIFERATIVE
     Dosage: 1 GRAM (1 GRAM, 1 IN 1 D), INTRAVENOUS
     Route: 042
     Dates: start: 20030206, end: 20030208
  2. PREDNISOLONE [Suspect]
     Indication: GLOMERULONEPHRITIS MEMBRANOPROLIFERATIVE
     Dosage: 40 MG (1 D)
     Dates: start: 20030209, end: 20030406
  3. NEORAL [Suspect]
     Indication: GLOMERULONEPHRITIS MEMBRANOPROLIFERATIVE
     Dosage: 150 MG (1 D)
     Dates: start: 20030225, end: 20030322
  4. LISINOPRIL [Concomitant]
  5. VALSARTAN [Concomitant]
  6. ADALAT [Concomitant]
  7. ALDACTONE [Concomitant]
  8. METHYCOBAL (MECOBALAMIN) [Concomitant]
  9. FURTULON (DOXIFLURIDINE) [Concomitant]
  10. LASIX [Concomitant]
  11. LIPITOR [Concomitant]
  12. FAMOTIDINE [Concomitant]
  13. . [Concomitant]

REACTIONS (15)
  - ANAEMIA [None]
  - ANEURYSM [None]
  - ANGIONEUROTIC OEDEMA [None]
  - ASCITES [None]
  - CHOROIDAL NEOVASCULARISATION [None]
  - CREPITATIONS [None]
  - EYE DISORDER [None]
  - MACULAR OEDEMA [None]
  - OEDEMA PERIPHERAL [None]
  - RENAL IMPAIRMENT [None]
  - RETINAL HAEMORRHAGE [None]
  - RETINAL ISCHAEMIA [None]
  - RETINAL PIGMENT EPITHELIOPATHY [None]
  - VISUAL ACUITY REDUCED [None]
  - VITREOUS HAEMORRHAGE [None]
